FAERS Safety Report 24349576 (Version 2)
Quarter: 2025Q4

REPORT INFORMATION
  Report Type: Spontaneous
  Country: US (occurrence: US)
  Receive Date: 20240923
  Receipt Date: 20251110
  Transmission Date: 20260117
  Serious: No
  Sender: GLENMARK
  Company Number: US-GLENMARK PHARMACEUTICALS-2024GMK090189

PATIENT

DRUGS (1)
  1. VERAPAMIL [Suspect]
     Active Substance: VERAPAMIL HYDROCHLORIDE
     Indication: Blood pressure abnormal
     Dosage: 240 MILLIGRAM (1 IN THE MORNING, HALF IN EVENING AND HALF AT BEDTIME)
     Route: 065

REACTIONS (10)
  - Neuralgia [Unknown]
  - Feeling jittery [Unknown]
  - Drug intolerance [Unknown]
  - Back pain [Unknown]
  - Ill-defined disorder [Unknown]
  - Musculoskeletal pain [Unknown]
  - Product use issue [Unknown]
  - Product quality issue [Unknown]
  - Suspected counterfeit product [Unknown]
  - Drug effect less than expected [Unknown]

NARRATIVE: CASE EVENT DATE: 20240301
